FAERS Safety Report 25081098 (Version 2)
Quarter: 2025Q1

REPORT INFORMATION
  Report Type: Spontaneous
  Country: CO (occurrence: CO)
  Receive Date: 20250315
  Receipt Date: 20250326
  Transmission Date: 20250409
  Serious: Yes (Other)
  Sender: MSN LABORATORIES PRIVATE LIMITED
  Company Number: CO-MLMSERVICE-20250224-PI426523-00230-1

PATIENT

DRUGS (1)
  1. MOXIFLOXACIN [Suspect]
     Active Substance: MOXIFLOXACIN
     Indication: Product used for unknown indication
     Dosage: 400MG/DAY FOR 7 DAYS
     Route: 048

REACTIONS (2)
  - Glaucomatous optic neuropathy [Recovering/Resolving]
  - Iris transillumination defect [Recovering/Resolving]
